FAERS Safety Report 12109707 (Version 1)
Quarter: 2016Q1

REPORT INFORMATION
  Report Type: Spontaneous
  Country: HR (occurrence: HR)
  Receive Date: 20160224
  Receipt Date: 20160224
  Transmission Date: 20160526
  Serious: Yes (Other)
  Sender: FDA-Public Use
  Company Number: HR-ACTAVIS-2016-03591

PATIENT
  Age: 68 Year
  Sex: Female
  Weight: 80 kg

DRUGS (11)
  1. ARNETIN [Concomitant]
     Indication: BREAST CANCER
     Dosage: 50 MG, DAILY
     Route: 042
     Dates: start: 20151105
  2. DIUVER [Concomitant]
     Active Substance: TORSEMIDE
     Indication: PRODUCT USED FOR UNKNOWN INDICATION
     Dosage: UNK
     Route: 048
  3. HERCEPTIN [Suspect]
     Active Substance: TRASTUZUMAB
     Indication: BREAST CANCER
     Dosage: 600 MG, DAILY
     Route: 058
     Dates: start: 20151105
  4. DEXAMETHASON KRKA                  /00016001/ [Concomitant]
     Indication: BREAST CANCER
     Dosage: 12 MG, DAILY
     Route: 042
     Dates: start: 20151105
  5. MISAR [Concomitant]
     Indication: PRODUCT USED FOR UNKNOWN INDICATION
     Dosage: UNK
     Route: 048
  6. CONCOR [Concomitant]
     Active Substance: BISOPROLOL FUMARATE
     Indication: PRODUCT USED FOR UNKNOWN INDICATION
     Dosage: UNK
     Route: 048
  7. SINDAXEL [Suspect]
     Active Substance: PACLITAXEL
     Indication: BREAST CANCER
     Dosage: 130 MG, DAILY
     Route: 042
     Dates: start: 20151105
  8. SYNOPEN                            /00379602/ [Concomitant]
     Indication: BREAST CANCER
     Dosage: 20 MG, DAILY
     Route: 042
     Dates: start: 20151105
  9. BELFORMIN [Concomitant]
     Indication: PRODUCT USED FOR UNKNOWN INDICATION
     Dosage: UNK
     Route: 048
  10. SETRONON [Concomitant]
     Indication: BREAST CANCER
     Dosage: 4 MG, DAILY
     Route: 042
     Dates: start: 20151105
  11. PRILEN PLUS [Concomitant]
     Indication: PRODUCT USED FOR UNKNOWN INDICATION
     Dosage: 1 DF, UNK (DF: 5 MG RAMIPRIL + 25 MG HYDROCHLOROTHIAZIDE)
     Route: 048

REACTIONS (1)
  - Hypersensitivity [Recovered/Resolved]

NARRATIVE: CASE EVENT DATE: 20151106
